FAERS Safety Report 7491819-1 (Version None)
Quarter: 2011Q2

REPORT INFORMATION
  Report Type: 
  Country: None (occurrence: None)
  Receive Date: 20110519
  Receipt Date: 20110511
  Transmission Date: 20111010
  Serious: Yes (Life-Threatening, Hospitalization)
  Sender: FDA-Public Use
  Company Number: ES-MERCK-1105ESP00033

PATIENT
  Age: 71 Year
  Sex: Female

DRUGS (6)
  1. PRAVASTATIN SODIUM [Concomitant]
     Indication: HYPERLIPIDAEMIA
     Route: 048
     Dates: start: 20070201
  2. DIGOXIN [Concomitant]
     Indication: CARDIAC FAILURE CHRONIC
     Route: 048
  3. OMEPRAZOLE [Suspect]
     Route: 048
  4. ACENOCOUMAROL [Suspect]
     Indication: CARDIAC VALVE PROSTHESIS USER
     Route: 048
     Dates: end: 20100804
  5. VALSARTAN [Concomitant]
     Indication: CARDIAC FAILURE CHRONIC
     Route: 048
     Dates: start: 20070201, end: 20100804
  6. ZETIA [Suspect]
     Route: 048

REACTIONS (2)
  - HAEMORRHAGE INTRACRANIAL [None]
  - DRUG INTERACTION [None]
